FAERS Safety Report 20523122 (Version 1)
Quarter: 2022Q1

REPORT INFORMATION
  Report Type: Spontaneous
  Country: US (occurrence: US)
  Receive Date: 20220227
  Receipt Date: 20220227
  Transmission Date: 20220423
  Serious: No
  Sender: FDA-Public Use
  Company Number: US-JNJFOC-20220238991

PATIENT
  Sex: Male

DRUGS (1)
  1. INVEGA [Suspect]
     Active Substance: PALIPERIDONE
     Indication: Product used for unknown indication
     Route: 048

REACTIONS (5)
  - Salivary hypersecretion [Unknown]
  - Vomiting [Unknown]
  - Weight increased [Unknown]
  - Dyskinesia [Unknown]
  - Eye movement disorder [Unknown]
